FAERS Safety Report 19436475 (Version 1)
Quarter: 2021Q2

REPORT INFORMATION
  Report Type: Spontaneous
  Country: CA (occurrence: CA)
  Receive Date: 20210618
  Receipt Date: 20210618
  Transmission Date: 20210717
  Serious: Yes (Hospitalization)
  Sender: FDA-Public Use
  Company Number: CA-ROCHE-2849520

PATIENT
  Age: 57 Year
  Sex: Female

DRUGS (6)
  1. TEVAX [Concomitant]
     Active Substance: TETANUS TOXOIDS
  2. TYLENOL [Concomitant]
     Active Substance: ACETAMINOPHEN
  3. RITUXIMAB. [Suspect]
     Active Substance: RITUXIMAB
     Indication: RHEUMATOID ARTHRITIS
     Route: 042
  4. METHYLPREDNISOLONE SODIUM SUCCINATE. [Concomitant]
     Active Substance: METHYLPREDNISOLONE SODIUM SUCCINATE
     Route: 042
  5. RISEDRONATE [Concomitant]
     Active Substance: RISEDRONATE SODIUM
  6. BENADRYL [Concomitant]
     Active Substance: DIPHENHYDRAMINE HYDROCHLORIDE
     Route: 048

REACTIONS (15)
  - Paraesthesia [Recovered/Resolved]
  - Rash pruritic [Recovered/Resolved]
  - Throat irritation [Recovered/Resolved]
  - Blood pressure diastolic increased [Recovered/Resolved]
  - Feeling hot [Recovered/Resolved]
  - Pruritus [Recovered/Resolved]
  - Blood pressure fluctuation [Recovered/Resolved]
  - Sepsis [Recovered/Resolved]
  - Toothache [Recovered/Resolved]
  - Blood pressure increased [Recovered/Resolved]
  - Blood pressure systolic abnormal [Recovered/Resolved]
  - Injection site pain [Recovered/Resolved]
  - Body temperature increased [Recovered/Resolved]
  - Anxiety [Not Recovered/Not Resolved]
  - Infusion related reaction [Recovered/Resolved]
